FAERS Safety Report 11216685 (Version 1)
Quarter: 2015Q2

REPORT INFORMATION
  Report Type: Other
  Country: GB (occurrence: GB)
  Receive Date: 20150624
  Receipt Date: 20150624
  Transmission Date: 20150821
  Serious: Yes (Hospitalization, Other)
  Sender: FDA-Public Use
  Company Number: GB-MYLANLABS-2015M1020077

PATIENT

DRUGS (12)
  1. FLUOXETINE [Suspect]
     Active Substance: FLUOXETINE\FLUOXETINE HYDROCHLORIDE
     Dosage: 40 MG, QD
  2. LAMOTRIGINE. [Suspect]
     Active Substance: LAMOTRIGINE
     Indication: AFFECTIVE DISORDER
     Dosage: 25 MG, UNK
     Route: 048
     Dates: start: 20150530, end: 20150530
  3. CAFFEINE. [Suspect]
     Active Substance: CAFFEINE
     Dosage: UNK
  4. DIAZEPAM. [Concomitant]
     Active Substance: DIAZEPAM
     Dosage: TAKE AS REQUIRED UP TO TWICE A DAY.
     Route: 048
  5. CLONAZEPAM. [Concomitant]
     Active Substance: CLONAZEPAM
     Dosage: 1 MG, BID
  6. PARACETAMOL [Concomitant]
     Active Substance: ACETAMINOPHEN
     Dosage: 1 G, QID (TAKE AS REQUIRED UP TO 4 TIMES A DAY.)
     Route: 048
  7. SIMPLE LINCTUS [Concomitant]
     Active Substance: AMARANTH\CHLOROFORM\CITRIC ACID MONOHYDRATE\PIMPINELLA ANISUM WHOLE
     Dosage: 5 ML (TAKE AS REQUIRED UP TO 4 TIMES A DAY)
     Route: 048
  8. LEVOMEPROMAZINE [Suspect]
     Active Substance: LEVOMEPROMAZINE
     Dosage: 200 MG, BID
  9. HALOPERIDOL. [Concomitant]
     Active Substance: HALOPERIDOL
     Dosage: 5 MG, (TAKE AS REQUIRED UP TO TWICE A DAY.)
     Route: 048
  10. MELATONIN [Suspect]
     Active Substance: MELATONIN
     Dosage: 3 MG, QD (AT NIGHT)
  11. DIFFERIN [Concomitant]
     Active Substance: ADAPALENE
     Dosage: 1 DF, QD
     Route: 061
  12. CLINDAMYCIN [Concomitant]
     Active Substance: CLINDAMYCIN\CLINDAMYCIN PHOSPHATE
     Dosage: 1 DF, QD
     Route: 061

REACTIONS (9)
  - Dyspnoea [Recovering/Resolving]
  - Paraesthesia [Recovering/Resolving]
  - Malaise [Recovering/Resolving]
  - Hypoaesthesia [Recovering/Resolving]
  - Restlessness [Recovering/Resolving]
  - Abdominal discomfort [Recovering/Resolving]
  - Palpitations [Recovering/Resolving]
  - Hypoaesthesia oral [Recovering/Resolving]
  - Dizziness [Recovering/Resolving]

NARRATIVE: CASE EVENT DATE: 20150530
